FAERS Safety Report 18839853 (Version 1)
Quarter: 2021Q1

REPORT INFORMATION
  Report Type: Report from Study
  Country: BR (occurrence: BR)
  Receive Date: 20210203
  Receipt Date: 20210203
  Transmission Date: 20210419
  Serious: Yes (Hospitalization, Other)
  Sender: FDA-Public Use
  Company Number: NVSC2021BR025190

PATIENT
  Sex: Male

DRUGS (3)
  1. OXIMAX [Concomitant]
     Active Substance: MOMETASONE FUROATE
     Indication: PRODUCT USED FOR UNKNOWN INDICATION
     Dosage: 400 MG
     Route: 065
  2. AEROLIN [Concomitant]
     Active Substance: ALBUTEROL
     Indication: PRODUCT USED FOR UNKNOWN INDICATION
     Dosage: UNK
     Route: 065
  3. ULTIBRO [Suspect]
     Active Substance: GLYCOPYRRONIUM\INDACATEROL
     Indication: PRODUCT USED FOR UNKNOWN INDICATION
     Dosage: UNK, ADMINSTER A CAPSULE DAILY CONTINUES USE
     Route: 065

REACTIONS (8)
  - Loss of consciousness [Unknown]
  - End stage renal disease [Unknown]
  - Dyspnoea [Unknown]
  - Asthenia [Unknown]
  - Renal disorder [Unknown]
  - Hypertension [Unknown]
  - Coma [Unknown]
  - Chronic obstructive pulmonary disease [Unknown]
